FAERS Safety Report 8796282 (Version 1)
Quarter: 2012Q4

REPORT INFORMATION
  Report Type: 
  Country: US (occurrence: US)
  Receive Date: 20120920
  Receipt Date: 20120920
  Transmission Date: 20130627
  Serious: No
  Sender: FDA-Public Use
  Company Number: US-PFIZER INC-2012231342

PATIENT
  Age: 60 Year
  Sex: Female
  Weight: 53.06 kg

DRUGS (1)
  1. PROPANOLOL HCL [Suspect]
     Indication: HYPERTENSION
     Dosage: 40 mg, UNK

REACTIONS (1)
  - Drug ineffective [Unknown]
